FAERS Safety Report 11536176 (Version 3)
Quarter: 2016Q3

REPORT INFORMATION
  Report Type: Spontaneous
  Country: FR (occurrence: FR)
  Receive Date: 20150922
  Receipt Date: 20160801
  Transmission Date: 20161109
  Serious: Yes (Death, Hospitalization, Other)
  Sender: FDA-Public Use
  Company Number: FR-GLAXOSMITHKLINE-FR2015GSK132788

PATIENT
  Age: 2 Month
  Sex: Female

DRUGS (20)
  1. INFANRIX HEXA [Suspect]
     Active Substance: DIPHTHERIA AND TETANUS TOXOIDS AND ACELLULAR PERTUSSIS ADSORBED, INACTIVATED POLIOVIRUS AND HAEMOPHILUS B CONJUGATE AND HEPATITIS B VIRUS VACCINE
     Indication: PROPHYLAXIS
     Dates: start: 20150216, end: 20150216
  2. ALDACTONE [Suspect]
     Active Substance: SPIRONOLACTONE
     Indication: PATENT DUCTUS ARTERIOSUS
     Dosage: UNK
     Dates: start: 20150106, end: 2015
  3. CEFOTAXIME SODIUM [Suspect]
     Active Substance: CEFOTAXIME SODIUM
     Indication: STAPHYLOCOCCAL SEPSIS
     Dosage: UNK
     Route: 042
     Dates: start: 20141225, end: 20141226
  4. BRISTOPEN [Suspect]
     Active Substance: OXACILLIN SODIUM
     Indication: STAPHYLOCOCCAL SEPSIS
     Dosage: UNK
     Route: 042
     Dates: start: 20141225, end: 20150106
  5. INFANRIX HEXA [Suspect]
     Active Substance: DIPHTHERIA AND TETANUS TOXOIDS AND ACELLULAR PERTUSSIS ADSORBED, INACTIVATED POLIOVIRUS AND HAEMOPHILUS B CONJUGATE AND HEPATITIS B VIRUS VACCINE
     Indication: PROPHYLAXIS
     Dates: start: 20150316, end: 20150316
  6. NEOSYNEPHRINE [Suspect]
     Active Substance: PHENYLEPHRINE HYDROCHLORIDE
     Indication: DIAGNOSTIC PROCEDURE
     Dosage: UNK
     Route: 047
     Dates: start: 20150222, end: 20150317
  7. CAFEINE [Suspect]
     Active Substance: CAFFEINE
     Indication: INFANTILE APNOEA
     Dosage: UNK
     Dates: start: 20141217
  8. TRIFLUCAN [Suspect]
     Active Substance: FLUCONAZOLE
     Indication: INFECTION PROPHYLAXIS
     Dosage: UNK
     Dates: start: 20141219, end: 20150212
  9. LOXEN [Concomitant]
     Active Substance: NICARDIPINE HYDROCHLORIDE
     Indication: HYPERTENSION
     Route: 015
  10. CUROSURF [Concomitant]
     Active Substance: PORACTANT ALFA
     Dosage: UNK
     Dates: start: 20141216
  11. RIFAMYCINE CHIBRET [Suspect]
     Active Substance: RIFAMYCIN
     Indication: PROPHYLAXIS
     Dosage: UNK
     Route: 047
     Dates: start: 20141217, end: 20150112
  12. TOBREX [Suspect]
     Active Substance: TOBRAMYCIN
     Indication: INFECTION
     Dosage: UNK
     Route: 047
     Dates: start: 20150113, end: 20150121
  13. PREVNAR 13 [Suspect]
     Active Substance: PNEUMOCOCCAL 13-VALENT CONJUGATE VACCINE
     Indication: PROPHYLAXIS
     Dosage: 1 DF, UNK
     Dates: start: 20150216
  14. VANCOMYCINE SANDOZ [Suspect]
     Active Substance: VANCOMYCIN
     Indication: STAPHYLOCOCCAL SEPSIS
     Dosage: UNK
     Route: 042
     Dates: start: 20141225, end: 20141226
  15. PREVNAR 13 [Suspect]
     Active Substance: PNEUMOCOCCAL 13-VALENT CONJUGATE VACCINE
     Indication: PROPHYLAXIS
     Dosage: 1 DF, UNK
     Dates: start: 20150316
  16. BACTROBAN [Suspect]
     Active Substance: MUPIROCIN\MUPIROCIN CALCIUM
     Indication: INFECTION
     Dosage: UNK
     Route: 045
     Dates: start: 20150103, end: 20150308
  17. VITAMIN K [Suspect]
     Active Substance: PHYTONADIONE
     Dosage: UNK
     Route: 048
     Dates: start: 20141217, end: 2015
  18. LASILIX [Suspect]
     Active Substance: FUROSEMIDE
     Indication: PATENT DUCTUS ARTERIOSUS
     Dosage: UNK
     Dates: start: 20150101, end: 20150130
  19. MYDRIATICUM [Suspect]
     Active Substance: TROPICAMIDE
     Indication: DIAGNOSTIC PROCEDURE
     Dosage: UNK
     Route: 047
     Dates: start: 20150222, end: 20150317
  20. ALDOMET [Concomitant]
     Active Substance: METHYLDOPA
     Indication: HYPERTENSION
     Route: 015

REACTIONS (2)
  - Necrotising enterocolitis neonatal [Fatal]
  - Inappropriate schedule of drug administration [Unknown]

NARRATIVE: CASE EVENT DATE: 20150316
